FAERS Safety Report 5485875-X (Version None)
Quarter: 2007Q4

REPORT INFORMATION
  Report Type: 
  Country: None (occurrence: None)
  Receive Date: 20071015
  Receipt Date: 20071010
  Transmission Date: 20080405
  Serious: Yes (Hospitalization)
  Sender: FDA-Public Use
  Company Number: FR-WYE-G00457007

PATIENT
  Sex: Male

DRUGS (4)
  1. ADVIL LIQUI-GELS [Suspect]
     Dosage: UNKNOWN
     Route: 048
     Dates: start: 20060922, end: 20060926
  2. LAMISIL [Suspect]
     Dosage: UNKNOWN
     Route: 048
     Dates: start: 20060926, end: 20061007
  3. COLCHICINE [Suspect]
     Dosage: UNKNOWN
     Route: 048
     Dates: start: 20061005, end: 20061007
  4. ZITHROMAX [Suspect]
     Dosage: UNKNOWN
     Route: 048
     Dates: start: 20060922, end: 20060926

REACTIONS (1)
  - CUTANEOUS VASCULITIS [None]
